FAERS Safety Report 12639249 (Version 2)
Quarter: 2016Q4

REPORT INFORMATION
  Report Type: Spontaneous
  Country: US (occurrence: US)
  Receive Date: 20160810
  Receipt Date: 20161013
  Transmission Date: 20170207
  Serious: No
  Sender: FDA-Public Use
  Company Number: US-ACTELION-A-US2016-140519

PATIENT
  Age: 63 Year
  Sex: Female

DRUGS (10)
  1. OPSUMIT [Suspect]
     Active Substance: MACITENTAN
     Indication: PULMONARY ARTERIAL HYPERTENSION
     Dosage: 10 MG, QD
     Route: 048
     Dates: start: 20160311
  2. PREDNISONE. [Concomitant]
     Active Substance: PREDNISONE
  3. IRON [Concomitant]
     Active Substance: IRON
  4. VITAMIN D [Concomitant]
     Active Substance: CHOLECALCIFEROL
  5. ADCIRCA [Concomitant]
     Active Substance: TADALAFIL
  6. CHLORTHALIDONE. [Concomitant]
     Active Substance: CHLORTHALIDONE
  7. MULTIVITAMIN [Concomitant]
     Active Substance: VITAMINS
  8. AMLODIPINE [Concomitant]
     Active Substance: AMLODIPINE BESYLATE
  9. MYCOPHENOLATE [Concomitant]
     Active Substance: MYCOPHENOLIC ACID
  10. VITAMIN C [Concomitant]
     Active Substance: ASCORBIC ACID

REACTIONS (5)
  - Muscle spasms [Not Recovered/Not Resolved]
  - Nasal congestion [Unknown]
  - Vision blurred [Unknown]
  - Tinnitus [Unknown]
  - Headache [Unknown]

NARRATIVE: CASE EVENT DATE: 20160712
